FAERS Safety Report 11901851 (Version 1)
Quarter: 2016Q1

REPORT INFORMATION
  Report Type: Spontaneous
  Country: US (occurrence: US)
  Receive Date: 20160108
  Receipt Date: 20160108
  Transmission Date: 20160526
  Serious: Yes (Other)
  Sender: FDA-Public Use
  Company Number: US-PFIZER INC-2016002512

PATIENT
  Age: 31 Year
  Sex: Male

DRUGS (2)
  1. LYRICA [Suspect]
     Active Substance: PREGABALIN
     Indication: COMPLEX REGIONAL PAIN SYNDROME
     Dosage: 50 MG, 2X/DAY
     Dates: start: 201507
  2. TESTOSTERONE. [Concomitant]
     Active Substance: TESTOSTERONE
     Dosage: UNK

REACTIONS (8)
  - Blood oestrogen increased [Unknown]
  - Rheumatoid arthritis [Unknown]
  - Mood altered [Unknown]
  - Oedema peripheral [Unknown]
  - Fluid retention [Unknown]
  - Libido decreased [Unknown]
  - Weight increased [Unknown]
  - Blood pressure increased [Unknown]
